FAERS Safety Report 5653784-9 (Version None)
Quarter: 2008Q1

REPORT INFORMATION
  Report Type: 
  Country: None (occurrence: None)
  Receive Date: 20080205
  Receipt Date: 20071003
  Transmission Date: 20080703
  Serious: Yes (Other)
  Sender: FDA-Public Use
  Company Number: 522891

PATIENT
  Sex: 0

DRUGS (1)
  1. BONIVA [Suspect]
     Indication: DRUG USE FOR UNKNOWN INDICATION
     Dosage: 3 MG INTRAVENOUS
     Route: 042

REACTIONS (2)
  - CELLULITIS [None]
  - INJECTION SITE EXTRAVASATION [None]
